FAERS Safety Report 9889786 (Version 2)
Quarter: 2014Q1

REPORT INFORMATION
  Report Type: Report from Study
  Country: CO (occurrence: CO)
  Receive Date: 20140212
  Receipt Date: 20140218
  Transmission Date: 20141002
  Serious: Yes (Hospitalization)
  Sender: FDA-Public Use
  Company Number: CO-ROCHE-1347887

PATIENT
  Age: 81 Year
  Sex: Female
  Weight: 78 kg

DRUGS (8)
  1. LUCENTIS [Suspect]
     Indication: MACULAR DEGENERATION
     Route: 050
     Dates: start: 201309
  2. LUCENTIS [Suspect]
     Route: 050
     Dates: start: 201310
  3. LUCENTIS [Suspect]
     Route: 050
     Dates: start: 201311, end: 20131201
  4. LUCENTIS [Suspect]
     Route: 050
     Dates: start: 201401
  5. LOSARTAN [Concomitant]
  6. CLOPIDOGREL [Concomitant]
  7. ATORVASTAN [Concomitant]
  8. ACETYLSALICYLIC ACID [Concomitant]

REACTIONS (1)
  - Embolism [Unknown]
